FAERS Safety Report 7797488-5 (Version None)
Quarter: 2011Q4

REPORT INFORMATION
  Report Type: 
  Country: None (occurrence: None)
  Receive Date: 20111004
  Receipt Date: 20111004
  Transmission Date: 20120403
  Serious: Yes (Hospitalization)
  Sender: FDA-Public Use
  Company Number: None

PATIENT
  Sex: Male
  Weight: 27.2 kg

DRUGS (4)
  1. MERCAPTOPURINE [Suspect]
     Dosage: 2375 MG
  2. DEXAMETHASONE [Suspect]
     Dosage: 28 MG
  3. VINCRISTINE SULFATE [Suspect]
     Dosage: 1.4 MG
  4. METHOTREXATE [Suspect]
     Dosage: 75 MG

REACTIONS (10)
  - PANCREATITIS [None]
  - BLOOD CREATINE PHOSPHOKINASE INCREASED [None]
  - HYPOTENSION [None]
  - ASPARTATE AMINOTRANSFERASE INCREASED [None]
  - INCORRECT DOSE ADMINISTERED [None]
  - MULTI-ORGAN FAILURE [None]
  - RESPIRATORY SYNCYTIAL VIRUS TEST POSITIVE [None]
  - SEPTIC SHOCK [None]
  - VIRAL INFECTION [None]
  - ALANINE AMINOTRANSFERASE INCREASED [None]
